FAERS Safety Report 7254331-0 (Version None)
Quarter: 2011Q1

REPORT INFORMATION
  Report Type: 
  Country: None (occurrence: None)
  Receive Date: 20110129
  Receipt Date: 20100223
  Transmission Date: 20110831
  Serious: No
  Sender: FDA-Public Use
  Company Number: US-ABBOTT-10P-163-0621611-00

PATIENT
  Sex: Female
  Weight: 46.308 kg

DRUGS (21)
  1. LYRICA [Concomitant]
     Indication: FIBROMYALGIA
  2. CLONAZEPAM [Concomitant]
     Indication: SLEEP DISORDER THERAPY
  3. ADVAIR DISKUS 100/50 [Concomitant]
     Indication: PNEUMONIA
  4. GLUCOSAMINE [Concomitant]
     Indication: PRODUCT USED FOR UNKNOWN INDICATION
  5. VITAMIN D [Concomitant]
     Indication: PRODUCT USED FOR UNKNOWN INDICATION
  6. BENTYL [Concomitant]
     Indication: PRODUCT USED FOR UNKNOWN INDICATION
  7. HUMIRA [Suspect]
     Indication: RHEUMATOID ARTHRITIS
     Dates: start: 20040101, end: 20100114
  8. PAROXETINE HCL [Concomitant]
     Indication: ANXIETY
  9. FOSAMAX [Concomitant]
     Indication: PRODUCT USED FOR UNKNOWN INDICATION
  10. SULFASALAZINE [Concomitant]
     Indication: RHEUMATOID ARTHRITIS
  11. PROAIR HFA [Concomitant]
     Indication: PNEUMONIA
  12. OMEPRAZOLE [Concomitant]
     Indication: ABDOMINAL DISCOMFORT
  13. PROAIR HFA [Concomitant]
     Indication: CHRONIC OBSTRUCTIVE PULMONARY DISEASE
  14. IRON [Concomitant]
     Indication: MINERAL SUPPLEMENTATION
  15. ADVAIR DISKUS 100/50 [Concomitant]
     Indication: CHRONIC OBSTRUCTIVE PULMONARY DISEASE
  16. ROBAXIN [Concomitant]
     Indication: PRODUCT USED FOR UNKNOWN INDICATION
  17. PREDNISONE [Concomitant]
     Indication: RHEUMATOID ARTHRITIS
  18. PREDNISONE [Concomitant]
     Indication: OSTEOARTHRITIS
  19. ALENDRONATE SODIUM [Concomitant]
     Indication: OSTEOPOROSIS
  20. CALTRATE [Concomitant]
     Indication: PRODUCT USED FOR UNKNOWN INDICATION
  21. KLONOPIN [Concomitant]
     Indication: PRODUCT USED FOR UNKNOWN INDICATION

REACTIONS (2)
  - PNEUMONIA [None]
  - BRONCHITIS [None]
